FAERS Safety Report 16792755 (Version 1)
Quarter: 2019Q3

REPORT INFORMATION
  Report Type: Spontaneous
  Country: DK (occurrence: DK)
  Receive Date: 20190910
  Receipt Date: 20190910
  Transmission Date: 20191005
  Serious: Yes (Hospitalization)
  Sender: FDA-Public Use
  Company Number: PHHY2019DK208473

PATIENT
  Age: 87 Year
  Sex: Female

DRUGS (3)
  1. DICILLIN [Suspect]
     Active Substance: DICLOXACILLIN SODIUM
     Indication: SKIN WOUND
     Dosage: 3000 MG, QD, STYRKE: 500 MG
     Route: 048
     Dates: start: 20190720, end: 20190725
  2. AMLODIPINE [Concomitant]
     Active Substance: AMLODIPINE BESYLATE
     Indication: HYPERTENSION
     Dosage: 5 MG, QD, STYRKE: 5 MG.
     Route: 048
     Dates: start: 20170502
  3. TRAMADOL. [Concomitant]
     Active Substance: TRAMADOL
     Indication: PAIN
     Dosage: UNK, DOSIS: 1 TABL. MORGEN, 2 TABL. AFTEN. STYRKE: 50 MG.
     Route: 048

REACTIONS (3)
  - Glossodynia [Recovered/Resolved]
  - Dysphagia [Recovered/Resolved]
  - Lip swelling [Recovered/Resolved]

NARRATIVE: CASE EVENT DATE: 201907
